FAERS Safety Report 18040154 (Version 2)
Quarter: 2020Q3

REPORT INFORMATION
  Report Type: Spontaneous
  Country: JP (occurrence: JP)
  Receive Date: 20200717
  Receipt Date: 20200724
  Transmission Date: 20201103
  Serious: Yes (Other)
  Sender: FDA-Public Use
  Company Number: JP-FERRINGPH-2020FE04539

PATIENT
  Age: 32 Year
  Sex: Female

DRUGS (2)
  1. LUTINUS [Suspect]
     Active Substance: PROGESTERONE
     Indication: PRODUCT USED FOR UNKNOWN INDICATION
     Dosage: 100 MG, 3 TIMES DAILY
     Route: 067
  2. LUTINUS [Suspect]
     Active Substance: PROGESTERONE
     Dosage: UNK
     Route: 067

REACTIONS (4)
  - Ectopic pregnancy [Unknown]
  - Off label use [Unknown]
  - Vaginal discharge [Unknown]
  - Contraindicated product prescribed [Unknown]

NARRATIVE: CASE EVENT DATE: 20200703
